FAERS Safety Report 20920799 (Version 2)
Quarter: 2022Q2

REPORT INFORMATION
  Report Type: Spontaneous
  Country: US (occurrence: US)
  Receive Date: 20220606
  Receipt Date: 20220614
  Transmission Date: 20220721
  Serious: No
  Sender: FDA-Public Use
  Company Number: US-MYLANLABS-2022M1039594

PATIENT
  Sex: Female

DRUGS (1)
  1. ESTRADIOL TRANSDERMAL SYSTEM [Suspect]
     Active Substance: ESTRADIOL
     Indication: Product used for unknown indication
     Dosage: 0.075 MILLIGRAM, QD(CHANGED  TO  ONCE WEEKLY)
     Route: 062
     Dates: start: 202205, end: 20220517

REACTIONS (2)
  - Application site pruritus [Recovered/Resolved]
  - Application site hypersensitivity [Unknown]
